FAERS Safety Report 14917878 (Version 5)
Quarter: 2018Q3

REPORT INFORMATION
  Report Type: Report from Study
  Country: KR (occurrence: KR)
  Receive Date: 20180521
  Receipt Date: 20180903
  Transmission Date: 20181010
  Serious: Yes (Hospitalization)
  Sender: FDA-Public Use
  Company Number: KR-ROCHE-2125232

PATIENT
  Age: 74 Year
  Sex: Female
  Weight: 45 kg

DRUGS (10)
  1. MAGNESIUM OXIDE. [Concomitant]
     Active Substance: MAGNESIUM OXIDE
     Indication: CONSTIPATION
     Route: 065
     Dates: start: 20171218
  2. ATEZOLIZUMAB. [Suspect]
     Active Substance: ATEZOLIZUMAB
     Indication: TRANSITIONAL CELL CARCINOMA
     Dosage: DATE OF MOST RECENT DOSE OF ATEZOLIZUMAB PRIOR TO PNEUMATOSIS INTESTINALIS ONSET 17/APR/2018?DATE OF
     Route: 042
     Dates: start: 20171214
  3. PRITOR [Concomitant]
     Active Substance: TELMISARTAN
     Indication: HYPERTENSION
     Route: 065
     Dates: start: 20171226
  4. TARGIN [Concomitant]
     Active Substance: NALOXONE HYDROCHLORIDE\OXYCODONE HYDROCHLORIDE
     Indication: FLANK PAIN
     Dosage: 10/5MG
     Route: 065
     Dates: start: 20180124
  5. APETROL ES [Concomitant]
     Indication: PROPHYLAXIS
     Route: 065
     Dates: start: 20180123
  6. CINALONG [Concomitant]
     Indication: HYPERTENSION
     Route: 065
     Dates: start: 20171226
  7. COBIMETINIB. [Suspect]
     Active Substance: COBIMETINIB
     Indication: TRANSITIONAL CELL CARCINOMA
     Dosage: DATE OF MOST RECENT DOSE OF COBIMETINIB PRIOR TO SAE ONSET 23/APR/2018
     Route: 048
     Dates: start: 20171214
  8. ENCOVER [Concomitant]
     Route: 065
     Dates: start: 20171214
  9. DULCOLAX?S [Concomitant]
     Indication: CONSTIPATION
     Route: 065
     Dates: start: 20171218
  10. PHAZYME?95 [Concomitant]
     Indication: DYSPEPSIA
     Route: 065
     Dates: start: 20180123

REACTIONS (2)
  - Ileus [Recovered/Resolved]
  - Pneumatosis intestinalis [Not Recovered/Not Resolved]

NARRATIVE: CASE EVENT DATE: 20180511
